FAERS Safety Report 8321695-6 (Version None)
Quarter: 2012Q2

REPORT INFORMATION
  Report Type: 
  Country: None (occurrence: None)
  Receive Date: 20120430
  Receipt Date: 20091110
  Transmission Date: 20120825
  Serious: No
  Sender: FDA-Public Use
  Company Number: US-TEVA-2009016175

PATIENT
  Sex: Female

DRUGS (2)
  1. PROVIGIL [Suspect]
     Dosage: 400 MILLIGRAM;
     Route: 048
  2. NUVIGIL [Suspect]
     Dosage: 125 MILLIGRAM;
     Route: 048

REACTIONS (3)
  - ANXIETY [None]
  - DRUG INTERACTION [None]
  - ACCIDENTAL OVERDOSE [None]
